FAERS Safety Report 9854227 (Version 1)
Quarter: 2014Q1

REPORT INFORMATION
  Report Type: Report from Study
  Country: FR (occurrence: FR)
  Receive Date: 20140130
  Receipt Date: 20140130
  Transmission Date: 20141002
  Serious: Yes (Hospitalization)
  Sender: FDA-Public Use
  Company Number: FR-ROCHE-1340123

PATIENT
  Sex: Male

DRUGS (4)
  1. RITUXIMAB [Suspect]
     Indication: RHEUMATOID ARTHRITIS
     Dosage: DAY 1
     Route: 065
     Dates: start: 20080317
  2. RITUXIMAB [Suspect]
     Dosage: DAY 15
     Route: 065
     Dates: start: 20080331
  3. METHOTREXATE [Concomitant]
     Route: 065
  4. CORTANCYL [Concomitant]
     Route: 065

REACTIONS (3)
  - Nasopharyngitis [Recovered/Resolved]
  - Hip arthroplasty [Recovered/Resolved]
  - Arthrodesis [Recovered/Resolved]
